FAERS Safety Report 8511742-0 (Version None)
Quarter: 2012Q3

REPORT INFORMATION
  Report Type: 
  Country: None (occurrence: None)
  Receive Date: 20120716
  Receipt Date: 20120704
  Transmission Date: 20120928
  Serious: Yes (Death)
  Sender: FDA-Public Use
  Company Number: GT-GENZYME-POMP-1002302

PATIENT
  Sex: Male
  Weight: 6.1 kg

DRUGS (1)
  1. MYOZYME [Suspect]
     Indication: GLYCOGEN STORAGE DISEASE TYPE II
     Dosage: 20 MG/KG, Q2W
     Route: 042
     Dates: start: 20120507, end: 20120507

REACTIONS (1)
  - DEATH [None]
